FAERS Safety Report 19399396 (Version 2)
Quarter: 2024Q1

REPORT INFORMATION
  Report Type: Spontaneous
  Country: IE (occurrence: None)
  Receive Date: 20210610
  Receipt Date: 20240318
  Transmission Date: 20240410
  Serious: Yes (Hospitalization)
  Sender: FDA-Public Use
  Company Number: IE-UNICHEM PHARMACEUTICALS (USA) INC-UCM202106-000517

PATIENT
  Age: 57 Year
  Sex: Female

DRUGS (5)
  1. QUETIAPINE [Suspect]
     Active Substance: QUETIAPINE
     Indication: Schizophrenia
  2. ASPIRIN [Concomitant]
     Active Substance: ASPIRIN
     Indication: Product used for unknown indication
  3. METFORMIN [Concomitant]
     Active Substance: METFORMIN HYDROCHLORIDE
     Indication: Product used for unknown indication
  4. RISPERIDONE [Concomitant]
     Active Substance: RISPERIDONE
     Indication: Schizophrenia
  5. THYROXINE [Concomitant]
     Active Substance: LEVOTHYROXINE
     Indication: Product used for unknown indication

REACTIONS (14)
  - Brain oedema [Recovered/Resolved]
  - Respiratory distress [Recovered/Resolved]
  - Syncope [Recovered/Resolved]
  - Pneumonia [Recovered/Resolved]
  - Staring [Recovered/Resolved]
  - Miosis [Recovered/Resolved]
  - Hyponatraemia [Recovered/Resolved]
  - Inappropriate antidiuretic hormone secretion [Recovered/Resolved]
  - Pneumonia aspiration [Recovered/Resolved]
  - Confusional state [Recovered/Resolved]
  - Coma scale abnormal [Recovered/Resolved]
  - Vomiting [Recovered/Resolved]
  - Muscle rigidity [Recovered/Resolved]
  - Hypertension [Recovered/Resolved]
